FAERS Safety Report 5495221-3 (Version None)
Quarter: 2007Q4

REPORT INFORMATION
  Report Type: 
  Country: None (occurrence: None)
  Receive Date: 20071024
  Receipt Date: 20071019
  Transmission Date: 20080405
  Serious: Yes (Death, Hospitalization)
  Sender: FDA-Public Use
  Company Number: US-ABBOTT-07P-163-0421649-00

PATIENT
  Sex: Male
  Weight: 90.8 kg

DRUGS (5)
  1. HUMIRA [Suspect]
     Indication: RHEUMATOID ARTHRITIS
     Route: 058
     Dates: end: 20061101
  2. HEART MEDICATION [Concomitant]
     Indication: CARDIAC DISORDER
  3. RHEUMATOID ARTHRITIS MEDICATION [Concomitant]
     Indication: RHEUMATOID ARTHRITIS
  4. BLOOD PRESSURE MEDICATION [Concomitant]
     Indication: BLOOD PRESSURE
  5. PREDNISONE [Concomitant]
     Indication: DRUG USE FOR UNKNOWN INDICATION

REACTIONS (3)
  - IMPLANTABLE DEFIBRILLATOR MALFUNCTION [None]
  - INFECTION [None]
  - STAPHYLOCOCCAL INFECTION [None]
